FAERS Safety Report 14372049 (Version 5)
Quarter: 2018Q2

REPORT INFORMATION
  Report Type: Report from Study
  Country: CA (occurrence: CA)
  Receive Date: 20180110
  Receipt Date: 20180621
  Transmission Date: 20180711
  Serious: Yes (Other)
  Sender: FDA-Public Use
  Company Number: CA-BRISTOL-MYERS SQUIBB COMPANY-BMS-2017-073246

PATIENT
  Age: 70 Year
  Sex: Female

DRUGS (1)
  1. ABATACEPT [Suspect]
     Active Substance: ABATACEPT
     Indication: RHEUMATOID ARTHRITIS
     Dosage: 125 MG, QWK
     Route: 058
     Dates: start: 20160725

REACTIONS (15)
  - Productive cough [Unknown]
  - Inflammation [Unknown]
  - Oedema peripheral [Unknown]
  - Nasopharyngitis [Unknown]
  - Wheezing [Unknown]
  - Cold sweat [Unknown]
  - Drug ineffective [Unknown]
  - Condition aggravated [Unknown]
  - Rheumatic disorder [Unknown]
  - Cataract [Recovering/Resolving]
  - Skin disorder [Unknown]
  - Pain [Unknown]
  - Musculoskeletal stiffness [Unknown]
  - Wrist fracture [Recovering/Resolving]
  - Oxygen saturation decreased [Recovering/Resolving]

NARRATIVE: CASE EVENT DATE: 20170812
